FAERS Safety Report 16781223 (Version 9)
Quarter: 2021Q4

REPORT INFORMATION
  Report Type: Report from Study
  Country: RU (occurrence: RU)
  Receive Date: 20190906
  Receipt Date: 20211222
  Transmission Date: 20220303
  Serious: Yes (Death, Life-Threatening, Hospitalization, Disabling)
  Sender: FDA-Public Use
  Company Number: PHHO2019RU008813

PATIENT
  Age: 58 Year
  Sex: Female
  Weight: 85 kg

DRUGS (9)
  1. MIDOSTAURIN [Suspect]
     Active Substance: MIDOSTAURIN
     Indication: Acute myeloid leukaemia
     Dosage: 50 MG, BID
     Route: 048
     Dates: start: 20190830, end: 20190901
  2. CYTARABINE [Suspect]
     Active Substance: CYTARABINE
     Indication: Acute myeloid leukaemia
     Dosage: 200 MG/M2, QD
     Route: 042
     Dates: start: 20190823
  3. DAUNORUBICIN [Suspect]
     Active Substance: DAUNORUBICIN
     Indication: Acute myeloid leukaemia
     Dosage: 60 MG/M2, QD
     Route: 042
     Dates: start: 20190823
  4. ALLOPURINOL [Concomitant]
     Active Substance: ALLOPURINOL
     Indication: Prophylaxis
     Dosage: UNK
     Route: 065
     Dates: start: 20190820, end: 20190830
  5. ONDANSETRON [Concomitant]
     Active Substance: ONDANSETRON
     Indication: Antiemetic supportive care
     Dosage: UNK
     Route: 065
     Dates: start: 20190823, end: 20190829
  6. CEFEPIME [Concomitant]
     Active Substance: CEFEPIME HYDROCHLORIDE
     Indication: Febrile neutropenia
     Dosage: UNK
     Route: 065
     Dates: start: 20190819, end: 20190826
  7. AMIKACIN [Concomitant]
     Active Substance: AMIKACIN
     Indication: Febrile neutropenia
     Dosage: UNK
     Route: 065
     Dates: start: 20190819, end: 20190901
  8. MEROPENEM [Concomitant]
     Active Substance: MEROPENEM
     Indication: Febrile neutropenia
     Dosage: UNK
     Route: 065
     Dates: start: 20190826, end: 20190901
  9. LINEZOLID [Concomitant]
     Active Substance: LINEZOLID
     Indication: Sepsis
     Dosage: UNK
     Route: 065
     Dates: start: 20190904

REACTIONS (1)
  - Pneumonia [Fatal]

NARRATIVE: CASE EVENT DATE: 20190901
